FAERS Safety Report 6853919-6 (Version None)
Quarter: 2010Q3

REPORT INFORMATION
  Report Type: 
  Country: None (occurrence: None)
  Receive Date: 20100717
  Receipt Date: 20071221
  Transmission Date: 20110219
  Serious: No
  Sender: FDA-Public Use
  Company Number: US-PFIZER INC-2007108465

PATIENT
  Sex: Male
  Weight: 113.6 kg

DRUGS (3)
  1. CHANTIX [Suspect]
     Indication: SMOKING CESSATION THERAPY
     Dates: start: 20071213, end: 20071221
  2. OXYCODONE HCL [Concomitant]
     Indication: PAIN
  3. ZOLOFT [Concomitant]
     Indication: DEPRESSION

REACTIONS (2)
  - ABDOMINAL DISCOMFORT [None]
  - NAUSEA [None]
